FAERS Safety Report 9328398 (Version 1)
Quarter: 2013Q2

REPORT INFORMATION
  Report Type: Spontaneous
  Country: US (occurrence: US)
  Receive Date: 20130604
  Receipt Date: 20130604
  Transmission Date: 20140414
  Serious: No
  Sender: FDA-Public Use
  Company Number: US-SANOFI-AVENTIS-2012SA059320

PATIENT
  Age: 78 Year
  Sex: Female

DRUGS (4)
  1. LANTUS [Suspect]
     Indication: DIABETES MELLITUS
     Dosage: DOSE:10 UNIT(S)
     Route: 058
  2. APIDRA [Concomitant]
     Dosage: DOSE:5-7 UNITS WITH EACH MEAL
  3. TRIAMCINOLONE ACETONIDE [Concomitant]
     Indication: BACK PAIN
  4. TYLENOL [Concomitant]
     Indication: BACK PAIN

REACTIONS (2)
  - Back pain [Recovering/Resolving]
  - Blood glucose increased [Recovered/Resolved]
